FAERS Safety Report 8547681-9 (Version None)
Quarter: 2012Q3

REPORT INFORMATION
  Report Type: 
  Country: None (occurrence: None)
  Receive Date: 20120727
  Receipt Date: 20111122
  Transmission Date: 20120928
  Serious: Yes (Other)
  Sender: FDA-Public Use
  Company Number: US-ASTRAZENECA-2011SE71164

PATIENT
  Age: 70 Year
  Sex: Female

DRUGS (3)
  1. LORAZEPAM [Concomitant]
  2. SEROQUEL XR [Suspect]
     Indication: HALLUCINATION
     Route: 048
  3. SEROQUEL XR [Suspect]
     Route: 048

REACTIONS (2)
  - AKATHISIA [None]
  - OFF LABEL USE [None]
